FAERS Safety Report 4801848-1 (Version None)
Quarter: 2005Q4

REPORT INFORMATION
  Report Type: 
  Country: None (occurrence: None)
  Receive Date: 20051011
  Receipt Date: 20050930
  Transmission Date: 20060501
  Serious: Yes (Hospitalization)
  Sender: FDA-Public Use
  Company Number: M001094

PATIENT
  Age: 31 Year
  Sex: Male
  Weight: 72.5755 kg

DRUGS (2)
  1. ACETADOTE [Suspect]
     Indication: DRUG TOXICITY
     Dosage: 300 MG/KG, IV
     Route: 042
     Dates: start: 20050925, end: 20050930
  2. ACETYLCYSTEINE [Suspect]

REACTIONS (5)
  - ALANINE AMINOTRANSFERASE INCREASED [None]
  - ASPARTATE AMINOTRANSFERASE INCREASED [None]
  - HEPATOTOXICITY [None]
  - INTERNATIONAL NORMALISED RATIO INCREASED [None]
  - LIVER TRANSPLANT [None]
